FAERS Safety Report 4323624-9 (Version None)
Quarter: 2004Q1

REPORT INFORMATION
  Report Type: 
  Country: None (occurrence: None)
  Receive Date: 20040326
  Receipt Date: 20040317
  Transmission Date: 20041129
  Serious: Yes (Other)
  Sender: FDA-Public Use
  Company Number: PHFR2004GB01473

PATIENT
  Age: 11 Year

DRUGS (1)
  1. AREDIA [Suspect]
     Indication: OSTEOPOROSIS
     Route: 048

REACTIONS (5)
  - BLOOD CREATINE PHOSPHOKINASE INCREASED [None]
  - BLOOD LACTATE DEHYDROGENASE INCREASED [None]
  - MUSCLE ENZYME INCREASED [None]
  - MYALGIA [None]
  - MYOSITIS [None]
